FAERS Safety Report 14869728 (Version 1)
Quarter: 2018Q2

REPORT INFORMATION
  Report Type: Spontaneous
  Country: US (occurrence: US)
  Receive Date: 20180509
  Receipt Date: 20180509
  Transmission Date: 20180711
  Serious: No
  Sender: FDA-Public Use
  Company Number: US-MYLANLABS-2018M1024267

PATIENT
  Age: 30 Year
  Sex: Female

DRUGS (2)
  1. FLUPHENAZINE HYDROCHLORIDE TABLETS, USP [Suspect]
     Active Substance: FLUPHENAZINE HYDROCHLORIDE
     Dosage: 5 UNK, UNK
     Route: 048
  2. FLUPHENAZINE HYDROCHLORIDE TABLETS, USP [Suspect]
     Active Substance: FLUPHENAZINE HYDROCHLORIDE
     Indication: DELUSIONAL DISORDER, UNSPECIFIED TYPE
     Dosage: 10 MG, UNK, 2.5 MG TO 10 MG, 6 TO 8 HOUR INTERVALS
     Route: 048
     Dates: start: 20180308

REACTIONS (4)
  - Lethargy [Not Recovered/Not Resolved]
  - Tremor [Not Recovered/Not Resolved]
  - Hyperhidrosis [Not Recovered/Not Resolved]
  - Dizziness [Not Recovered/Not Resolved]

NARRATIVE: CASE EVENT DATE: 20180308
